FAERS Safety Report 5068882-0 (Version None)
Quarter: 2006Q3

REPORT INFORMATION
  Report Type: 
  Country: None (occurrence: None)
  Receive Date: 20060802
  Receipt Date: 20060518
  Transmission Date: 20061208
  Serious: Yes (Hospitalization)
  Sender: FDA-Public Use
  Company Number: US-BRISTOL-MYERS SQUIBB COMPANY-13381504

PATIENT
  Age: 49 Year
  Sex: Female
  Weight: 91 kg

DRUGS (7)
  1. COUMADIN [Suspect]
     Dosage: STARTED TAKING ^WARFARIN SODIUM^ 5 MG DAILY, HELD DURING SURGERY
     Dates: start: 20060501
  2. TARO-WARFARIN [Suspect]
     Dosage: STARTED TAKING ^WARFARIN SODIUM^ 5 MG DAILY
     Dates: start: 20060101
  3. LOPRESSOR [Concomitant]
  4. ASPIRIN [Concomitant]
  5. ALTACE [Concomitant]
  6. ZOCOR [Concomitant]
  7. SP-8 HAWTHORN-MOTHERWORT [Concomitant]

REACTIONS (2)
  - INTERNATIONAL NORMALISED RATIO DECREASED [None]
  - THROMBOSIS [None]
